FAERS Safety Report 21707978 (Version 1)
Quarter: 2022Q4

REPORT INFORMATION
  Report Type: Report from Study
  Country: US (occurrence: US)
  Receive Date: 20221209
  Receipt Date: 20221209
  Transmission Date: 20230113
  Serious: Yes (Hospitalization, Other)
  Sender: FDA-Public Use
  Company Number: US-PFIZER INC-202201271698

PATIENT
  Age: 26 Year
  Sex: Female

DRUGS (2)
  1. BRAFTOVI [Suspect]
     Active Substance: ENCORAFENIB
     Dosage: (TAKE 6 CAPSULES ONCE DAILY)
     Route: 048
     Dates: start: 20221017
  2. MEKTOVI [Suspect]
     Active Substance: BINIMETINIB
     Dosage: (TAKE 3 TABLETS TWICE DAILY)
     Route: 048

REACTIONS (13)
  - Colitis ischaemic [Not Recovered/Not Resolved]
  - Diarrhoea [Not Recovered/Not Resolved]
  - Urinary tract infection [Unknown]
  - Adrenal insufficiency [Unknown]
  - Presyncope [Unknown]
  - Contusion [Recovering/Resolving]
  - Erythema [Unknown]
  - Brain oedema [Not Recovered/Not Resolved]
  - Upper limb fracture [Not Recovered/Not Resolved]
  - Fatigue [Not Recovered/Not Resolved]
  - Blood pressure decreased [Not Recovered/Not Resolved]
  - Adrenal disorder [Not Recovered/Not Resolved]
  - Product dose omission issue [Not Recovered/Not Resolved]

NARRATIVE: CASE EVENT DATE: 20220101
